FAERS Safety Report 19901554 (Version 1)
Quarter: 2021Q3

REPORT INFORMATION
  Report Type: Spontaneous
  Country: US (occurrence: US)
  Receive Date: 20210929
  Receipt Date: 20210929
  Transmission Date: 20211014
  Serious: Yes (Other)
  Sender: FDA-Public Use
  Company Number: US-GILEAD-2021-0549351

PATIENT

DRUGS (1)
  1. TRUVADA [Suspect]
     Active Substance: EMTRICITABINE\TENOFOVIR DISOPROXIL FUMARATE
     Indication: HIV INFECTION
     Dosage: UNK
     Route: 048
     Dates: start: 20080318, end: 20100506

REACTIONS (6)
  - Bone density decreased [Unknown]
  - Renal failure [Unknown]
  - Multiple fractures [Unknown]
  - Joint dislocation [Unknown]
  - Chronic kidney disease [Unknown]
  - Osteoporosis [Unknown]
